FAERS Safety Report 5883268-4 (Version None)
Quarter: 2008Q3

REPORT INFORMATION
  Report Type: 
  Country: None (occurrence: None)
  Receive Date: 20080910
  Receipt Date: 20080910
  Transmission Date: 20090109
  Serious: Yes (Other)
  Sender: FDA-Public Use
  Company Number: None

PATIENT
  Age: 25 Year
  Sex: Female
  Weight: 86.1834 kg

DRUGS (1)
  1. ELAVIL [Suspect]
     Indication: ANALGESIA
     Dosage: 25 MG 1 AT BEDTIME PO
     Route: 048
     Dates: start: 20080905, end: 20080905

REACTIONS (7)
  - ANOREXIA [None]
  - ASTHENIA [None]
  - FATIGUE [None]
  - HYPERSOMNIA [None]
  - MIGRAINE [None]
  - MOVEMENT DISORDER [None]
  - SOMNOLENCE [None]
